FAERS Safety Report 9207435 (Version 5)
Quarter: 2013Q2

REPORT INFORMATION
  Report Type: Report from Study
  Country: AU (occurrence: AU)
  Receive Date: 20130403
  Receipt Date: 20130627
  Transmission Date: 20140414
  Serious: Yes (Hospitalization, Other)
  Sender: FDA-Public Use
  Company Number: PHHY2013AU032138

PATIENT
  Age: 87 Year
  Sex: Female

DRUGS (5)
  1. ACLASTA [Suspect]
     Indication: OSTEOPOROSIS
     Dosage: 5 MG
     Route: 042
     Dates: start: 20120209
  2. ACLASTA [Suspect]
     Dosage: 5 MG
     Route: 042
     Dates: start: 20130409
  3. SODIUM VALPROATE [Concomitant]
     Indication: EPILEPSY
     Dosage: 3 TABLETS, BID
     Route: 048
     Dates: end: 20130330
  4. PHENYTOIN [Concomitant]
     Indication: EPILEPSY
     Dosage: 100 MG, UNK
     Route: 048
     Dates: end: 20130330
  5. LAMICTAL [Concomitant]
     Indication: EPILEPSY
     Dosage: 150 MG, (50MG MORNING AND 100MG EVENING)
     Route: 048
     Dates: end: 20130330

REACTIONS (5)
  - General physical health deterioration [Not Recovered/Not Resolved]
  - Mobility decreased [Not Recovered/Not Resolved]
  - Pelvic fracture [Not Recovered/Not Resolved]
  - Fall [Unknown]
  - Drug ineffective [Unknown]
